FAERS Safety Report 5974821-8 (Version None)
Quarter: 2008Q4

REPORT INFORMATION
  Report Type: 
  Country: None (occurrence: None)
  Receive Date: 20081201
  Receipt Date: 20081127
  Transmission Date: 20090506
  Serious: Yes (Other)
  Sender: FDA-Public Use
  Company Number: JP-PFIZER INC-2008100589

PATIENT
  Age: 80 Year
  Sex: Male

DRUGS (2)
  1. ZOLOFT [Suspect]
     Dates: start: 20081104, end: 20081104
  2. ALLEGRA [Concomitant]

REACTIONS (7)
  - ARRHYTHMIA [None]
  - GLOSSODYNIA [None]
  - HYPOAESTHESIA [None]
  - HYPOAESTHESIA ORAL [None]
  - PALPITATIONS [None]
  - TINNITUS [None]
  - TREMOR [None]
